FAERS Safety Report 16210780 (Version 4)
Quarter: 2019Q3

REPORT INFORMATION
  Report Type: Spontaneous
  Country: BR (occurrence: BR)
  Receive Date: 20190418
  Receipt Date: 20190703
  Transmission Date: 20191004
  Serious: Yes (Death, Other)
  Sender: FDA-Public Use
  Company Number: BR-ROCHE-2305973

PATIENT
  Sex: Male

DRUGS (14)
  1. DOXORUBICIN [Suspect]
     Active Substance: DOXORUBICIN
     Indication: DIFFUSE LARGE B-CELL LYMPHOMA
     Dosage: 6 CYCLES OF THE R-CHOP THERAPY
     Route: 065
     Dates: start: 20161201, end: 20170316
  2. CISPLATIN. [Suspect]
     Active Substance: CISPLATIN
     Indication: DIFFUSE LARGE B-CELL LYMPHOMA
     Dosage: 4 CYCLES OF THE R-ESHAP THERAPY
     Route: 065
     Dates: start: 20181026, end: 20190107
  3. RITUXIMAB. [Suspect]
     Active Substance: RITUXIMAB
     Dosage: R-IGEV  - 2 CYCLES
     Route: 065
     Dates: start: 20190129, end: 20190305
  4. VINCRISTINE [Suspect]
     Active Substance: VINCRISTINE
     Indication: DIFFUSE LARGE B-CELL LYMPHOMA
     Dosage: 6 CYCLES OF THE R-CHOP THERAPY
     Route: 065
     Dates: start: 20161201, end: 20170316
  5. PREDNISONE. [Suspect]
     Active Substance: PREDNISONE
     Indication: DIFFUSE LARGE B-CELL LYMPHOMA
     Dosage: 6 CYCLES OF THE R-CHOP THERAPY
     Route: 065
     Dates: start: 20161201, end: 20170316
  6. RITUXIMAB. [Suspect]
     Active Substance: RITUXIMAB
     Indication: DIFFUSE LARGE B-CELL LYMPHOMA
     Dosage: R-CHOP - 6 CYCLES
     Route: 065
     Dates: start: 20161201, end: 20170316
  7. CYCLOPHOSPHAMIDE. [Suspect]
     Active Substance: CYCLOPHOSPHAMIDE
     Indication: DIFFUSE LARGE B-CELL LYMPHOMA
     Dosage: 6 CYCLES OF THE R-CHOP THERAPY
     Route: 065
     Dates: start: 20161201
  8. ETOPOSIDE. [Suspect]
     Active Substance: ETOPOSIDE
     Indication: DIFFUSE LARGE B-CELL LYMPHOMA
     Dosage: 4 CYCLES OF THE R-ESHAP THERAPY
     Route: 065
     Dates: start: 20181026, end: 20190107
  9. RITUXIMAB. [Suspect]
     Active Substance: RITUXIMAB
     Dosage: R-ESHAP - 4 CYCLES
     Route: 065
     Dates: start: 20181026, end: 20190107
  10. METHYLPREDNISOLONE. [Suspect]
     Active Substance: METHYLPREDNISOLONE
     Indication: DIFFUSE LARGE B-CELL LYMPHOMA
     Dosage: 4 CYCLES OF THE R-ESHAP THERAPY
     Route: 065
     Dates: start: 20181026, end: 20190107
  11. IFOSFAMIDE. [Suspect]
     Active Substance: IFOSFAMIDE
     Indication: DIFFUSE LARGE B-CELL LYMPHOMA
     Dosage: 2 CYCLES OF THE R-IGEV THERAPY
     Route: 065
     Dates: start: 20190129, end: 20190305
  12. GEMCITABINE. [Suspect]
     Active Substance: GEMCITABINE
     Indication: DIFFUSE LARGE B-CELL LYMPHOMA
     Dosage: 2 CYCLES OF THE R-IGEV THERAPY
     Route: 065
     Dates: start: 20190129, end: 20190305
  13. CYTARABINE. [Suspect]
     Active Substance: CYTARABINE
     Indication: DIFFUSE LARGE B-CELL LYMPHOMA
     Dosage: 4 CYCLES OF THE R-ESHAP THERAPY
     Route: 065
     Dates: start: 20181026, end: 20190107
  14. VINORELBINE [Suspect]
     Active Substance: VINORELBINE TARTRATE
     Indication: DIFFUSE LARGE B-CELL LYMPHOMA
     Dosage: 2 CYCLES OF THE R-IGEV THERAPY
     Route: 065
     Dates: start: 20190129, end: 20190305

REACTIONS (3)
  - Death [Fatal]
  - Renal impairment [Unknown]
  - Febrile neutropenia [Unknown]
